FAERS Safety Report 4421304-2 (Version None)
Quarter: 2004Q3

REPORT INFORMATION
  Report Type: 
  Country: None (occurrence: None)
  Receive Date: 20040809
  Receipt Date: 20030909
  Transmission Date: 20050211
  Serious: Yes (Disabling)
  Sender: FDA-Public Use
  Company Number: US-MERCK-0309USA01065

PATIENT
  Age: 77 Year
  Sex: Male
  Weight: 70 kg

DRUGS (7)
  1. ASPIRIN [Concomitant]
     Route: 048
  2. TENORMIN [Concomitant]
     Route: 048
  3. NEXIUM [Concomitant]
     Route: 048
  4. ZETIA [Suspect]
     Indication: BLOOD CHOLESTEROL INCREASED
     Route: 048
     Dates: start: 20010101
  5. ZETIA [Suspect]
     Route: 048
     Dates: end: 20030101
  6. DIOVAN [Concomitant]
     Route: 048
  7. VITAMINS (UNSPECIFIED) [Concomitant]
     Route: 065

REACTIONS (4)
  - ABASIA [None]
  - BURNING SENSATION [None]
  - ORAL DISCOMFORT [None]
  - PAIN IN EXTREMITY [None]
